FAERS Safety Report 15263497 (Version 3)
Quarter: 2018Q3

REPORT INFORMATION
  Report Type: Report from Study
  Country: None (occurrence: US)
  Receive Date: 20180810
  Receipt Date: 20180914
  Transmission Date: 20181010
  Serious: Yes (Hospitalization)
  Sender: FDA-Public Use
  Company Number: US-ABBVIE-18K-163-2445202-00

PATIENT
  Age: 69 Year
  Sex: Male
  Weight: 74.91 kg

DRUGS (4)
  1. VENCLEXTA [Suspect]
     Active Substance: VENETOCLAX
     Indication: REMISSION NOT ACHIEVED
     Dosage: STARTING PACK: WEAK1:20MG, WEAK2:50MG?STARTING PACK: WEAK3:100MG, WEAK 4:200MG
     Route: 048
     Dates: start: 20180419
  2. VENCLEXTA [Suspect]
     Active Substance: VENETOCLAX
     Indication: CHRONIC LYMPHOCYTIC LEUKAEMIA
     Route: 048
     Dates: start: 201803, end: 2018
  3. VALTREX [Concomitant]
     Active Substance: VALACYCLOVIR HYDROCHLORIDE
     Indication: PRODUCT USED FOR UNKNOWN INDICATION
     Route: 048
  4. CIPRO [Concomitant]
     Active Substance: CIPROFLOXACIN HYDROCHLORIDE
     Indication: PRODUCT USED FOR UNKNOWN INDICATION
     Route: 048

REACTIONS (3)
  - Oral herpes [Unknown]
  - Immunodeficiency [Unknown]
  - Infection [Unknown]

NARRATIVE: CASE EVENT DATE: 201807
